FAERS Safety Report 18560005 (Version 1)
Quarter: 2020Q4

REPORT INFORMATION
  Report Type: Spontaneous
  Country: US (occurrence: US)
  Receive Date: 20201126
  Receipt Date: 20201126
  Transmission Date: 20210114
  Serious: Yes (Hospitalization)
  Sender: FDA-Public Use
  Company Number: None

PATIENT
  Age: 63 Year
  Sex: Female
  Weight: 60.8 kg

DRUGS (1)
  1. FEMARA [Suspect]
     Active Substance: LETROZOLE
     Dates: end: 20180314

REACTIONS (6)
  - Oedema peripheral [None]
  - Anaemia [None]
  - Hydronephrosis [None]
  - Lymphoedema [None]
  - Enterococcus test positive [None]
  - Acute kidney injury [None]

NARRATIVE: CASE EVENT DATE: 20180411
